FAERS Safety Report 5331088-1 (Version None)
Quarter: 2007Q2

REPORT INFORMATION
  Report Type: 
  Country: None (occurrence: None)
  Receive Date: 20070517
  Receipt Date: 20070510
  Transmission Date: 20071010
  Serious: Yes (Other)
  Sender: FDA-Public Use
  Company Number: 2007SP008921

PATIENT
  Age: 54 Year
  Sex: Female

DRUGS (2)
  1. PEG-INTRON [Suspect]
     Indication: HEPATITIS C
     Dosage: 80 MCG;QW;SC
     Route: 058
     Dates: start: 20060627, end: 20061206
  2. REBETOL [Suspect]
     Indication: HEPATITIS C
     Dosage: 600 MCG;QD;PO
     Route: 048
     Dates: start: 20060627, end: 20061206

REACTIONS (2)
  - ATRIOVENTRICULAR BLOCK [None]
  - HEART RATE DECREASED [None]
